FAERS Safety Report 19470105 (Version 2)
Quarter: 2021Q3

REPORT INFORMATION
  Report Type: Report from Study
  Country: US (occurrence: US)
  Receive Date: 20210628
  Receipt Date: 20210715
  Transmission Date: 20211014
  Serious: No
  Sender: FDA-Public Use
  Company Number: US-TAKEDA-2021TUS039662

PATIENT
  Sex: Male
  Weight: 79.3 kg

DRUGS (1)
  1. PONATINIB [Suspect]
     Active Substance: PONATINIB
     Indication: CHRONIC LYMPHOCYTIC LEUKAEMIA (IN REMISSION)
     Dosage: 30 MILLIGRAM, QD
     Route: 065

REACTIONS (2)
  - Bone pain [Unknown]
  - Off label use [Unknown]
